FAERS Safety Report 23811469 (Version 1)
Quarter: 2024Q2

REPORT INFORMATION
  Report Type: Report from Study
  Country: CA (occurrence: CA)
  Receive Date: 20240503
  Receipt Date: 20240503
  Transmission Date: 20240715
  Serious: Yes (Death, Hospitalization)
  Sender: FDA-Public Use
  Company Number: CA-JAMP PHARMA CORPORATION-2022-JAM-CA-00752

PATIENT
  Age: 76 Year
  Sex: Female

DRUGS (1)
  1. SIMLANDI [Suspect]
     Active Substance: ADALIMUMAB-RYVK
     Indication: Rheumatoid arthritis
     Dosage: 40 MILLIGRAM, EVERY 2 WEEKS
     Route: 058

REACTIONS (7)
  - Death [Fatal]
  - Gait inability [Unknown]
  - Dehydration [Unknown]
  - Hyperglycaemia [Unknown]
  - Asthenia [Unknown]
  - Arthralgia [Unknown]
  - Musculoskeletal stiffness [Unknown]

NARRATIVE: CASE EVENT DATE: 20230101
